FAERS Safety Report 4939768-4 (Version None)
Quarter: 2006Q1

REPORT INFORMATION
  Report Type: 
  Country: None (occurrence: None)
  Receive Date: 20060307
  Receipt Date: 20060301
  Transmission Date: 20060701
  Serious: Yes (Other)
  Sender: FDA-Public Use
  Company Number: 2006028567

PATIENT
  Age: 60 Year
  Sex: Female

DRUGS (6)
  1. NEURONTIN [Suspect]
     Indication: POLYNEUROPATHY
     Dosage: 1200 MG (400 MG, 3 IN 1 D), ORAL
     Route: 048
     Dates: start: 20050101
  2. SALBUTAMOL (SALBUTAMOL) [Concomitant]
  3. IPRATROPIUM BROMIDE [Concomitant]
  4. PREDNISONE TAB [Concomitant]
  5. PANTOPRAZOLE SODIUM [Concomitant]
  6. AMLODIPINE [Concomitant]

REACTIONS (3)
  - HYPERCAPNIA [None]
  - RESPIRATORY DEPRESSION [None]
  - RESPIRATORY FAILURE [None]
